FAERS Safety Report 16869227 (Version 1)
Quarter: 2019Q3

REPORT INFORMATION
  Report Type: Spontaneous
  Country: US (occurrence: US)
  Receive Date: 20190930
  Receipt Date: 20190930
  Transmission Date: 20191005
  Serious: Yes (Hospitalization)
  Sender: FDA-Public Use
  Company Number: US-ALLERGAN-1939172US

PATIENT
  Sex: Female

DRUGS (33)
  1. HYDROMORPHONE [Suspect]
     Active Substance: HYDROMORPHONE
     Indication: PAIN
     Route: 042
  2. HYDROMORPHONE [Suspect]
     Active Substance: HYDROMORPHONE
     Dosage: 1 MG
  3. MUSCLE RELAXANTS [Suspect]
     Active Substance: UNSPECIFIED INGREDIENT
     Indication: PAIN IN EXTREMITY
  4. GABAPENTIN. [Suspect]
     Active Substance: GABAPENTIN
     Indication: NECK PAIN
     Route: 065
  5. NORCO [Suspect]
     Active Substance: ACETAMINOPHEN\HYDROCODONE BITARTRATE
     Indication: SPINAL PAIN
     Dosage: UNK UNK, Q4HR
     Route: 065
  6. NORCO [Suspect]
     Active Substance: ACETAMINOPHEN\HYDROCODONE BITARTRATE
     Indication: SENSORY DISTURBANCE
     Dosage: UNK UNK, QID
     Route: 048
  7. NORCO [Suspect]
     Active Substance: ACETAMINOPHEN\HYDROCODONE BITARTRATE
     Indication: PAIN IN EXTREMITY
  8. STEROIDS [Suspect]
     Active Substance: UNSPECIFIED INGREDIENT
     Indication: NECK PAIN
  9. NON-STEROIDS ANTIINFLAMMATORY [Suspect]
     Active Substance: UNSPECIFIED INGREDIENT
     Indication: NECK PAIN
     Route: 065
  10. DIAZEPAM. [Suspect]
     Active Substance: DIAZEPAM
     Indication: SENSORY DISTURBANCE
  11. MUSCLE RELAXANTS [Suspect]
     Active Substance: UNSPECIFIED INGREDIENT
     Indication: NECK PAIN
     Route: 048
  12. GABAPENTIN. [Suspect]
     Active Substance: GABAPENTIN
     Indication: SENSORY DISTURBANCE
  13. NON-STEROIDS ANTIINFLAMMATORY [Suspect]
     Active Substance: UNSPECIFIED INGREDIENT
     Indication: MUSCULOSKELETAL PAIN
  14. NON-STEROIDS ANTIINFLAMMATORY [Suspect]
     Active Substance: UNSPECIFIED INGREDIENT
     Indication: SPINAL PAIN
  15. MUSCLE RELAXANTS [Suspect]
     Active Substance: UNSPECIFIED INGREDIENT
     Indication: SPINAL PAIN
  16. STEROIDS [Suspect]
     Active Substance: UNSPECIFIED INGREDIENT
     Indication: MUSCULOSKELETAL PAIN
  17. GABAPENTIN. [Suspect]
     Active Substance: GABAPENTIN
     Indication: MUSCULOSKELETAL PAIN
  18. NON-STEROIDS ANTIINFLAMMATORY [Suspect]
     Active Substance: UNSPECIFIED INGREDIENT
     Indication: SENSORY DISTURBANCE
  19. DIAZEPAM. [Suspect]
     Active Substance: DIAZEPAM
     Indication: PAIN IN EXTREMITY
  20. HYDROMORPHONE [Suspect]
     Active Substance: HYDROMORPHONE
     Dosage: 1 MG
     Route: 042
  21. MUSCLE RELAXANTS [Suspect]
     Active Substance: UNSPECIFIED INGREDIENT
     Indication: MUSCULOSKELETAL PAIN
  22. MUSCLE RELAXANTS [Suspect]
     Active Substance: UNSPECIFIED INGREDIENT
     Indication: SENSORY DISTURBANCE
  23. STEROIDS [Suspect]
     Active Substance: UNSPECIFIED INGREDIENT
     Indication: SPINAL PAIN
  24. GABAPENTIN. [Suspect]
     Active Substance: GABAPENTIN
     Indication: SPINAL PAIN
  25. GABAPENTIN. [Suspect]
     Active Substance: GABAPENTIN
     Indication: PAIN IN EXTREMITY
  26. NON-STEROIDS ANTIINFLAMMATORY [Suspect]
     Active Substance: UNSPECIFIED INGREDIENT
     Indication: PAIN IN EXTREMITY
  27. DIAZEPAM. [Suspect]
     Active Substance: DIAZEPAM
     Indication: NECK PAIN
     Route: 065
  28. DIAZEPAM. [Suspect]
     Active Substance: DIAZEPAM
     Indication: MUSCULOSKELETAL PAIN
  29. NORCO [Suspect]
     Active Substance: ACETAMINOPHEN\HYDROCODONE BITARTRATE
     Indication: MUSCULOSKELETAL PAIN
     Dosage: UNK, BID
     Route: 065
  30. STEROIDS [Suspect]
     Active Substance: UNSPECIFIED INGREDIENT
     Indication: SENSORY DISTURBANCE
  31. STEROIDS [Suspect]
     Active Substance: UNSPECIFIED INGREDIENT
     Indication: PAIN IN EXTREMITY
  32. NORCO [Suspect]
     Active Substance: ACETAMINOPHEN\HYDROCODONE BITARTRATE
     Indication: NECK PAIN
     Dosage: UP TO 4 TIMES A DAY
     Route: 065
  33. DIAZEPAM. [Suspect]
     Active Substance: DIAZEPAM
     Indication: SPINAL PAIN

REACTIONS (5)
  - Pain [Recovered/Resolved]
  - Unresponsive to stimuli [Recovered/Resolved]
  - Respiratory arrest [Recovered/Resolved]
  - Drug ineffective [Unknown]
  - Off label use [Unknown]
